FAERS Safety Report 6554239-X (Version None)
Quarter: 2010Q1

REPORT INFORMATION
  Report Type: 
  Country: None (occurrence: None)
  Receive Date: 20100127
  Receipt Date: 20100125
  Transmission Date: 20100710
  Serious: Yes (Death)
  Sender: FDA-Public Use
  Company Number: DE-ASTRAZENECA-2010SE03244

PATIENT
  Age: 32251 Day
  Sex: Female

DRUGS (1)
  1. SYMBICORT [Suspect]
     Indication: ASTHMA
     Dosage: 45/160 ONE INHALATIONS TWO TIMES A DAY
     Route: 055
     Dates: start: 20080505, end: 20091102

REACTIONS (1)
  - POST PROCEDURAL SEPSIS [None]
